FAERS Safety Report 13635526 (Version 5)
Quarter: 2018Q3

REPORT INFORMATION
  Report Type: Spontaneous
  Country: US (occurrence: US)
  Receive Date: 20170609
  Receipt Date: 20180824
  Transmission Date: 20181010
  Serious: Yes (Hospitalization)
  Sender: FDA-Public Use
  Company Number: US-PFIZER INC-2017254062

PATIENT
  Age: 37 Year
  Sex: Female
  Weight: 81.65 kg

DRUGS (2)
  1. LYRICA [Suspect]
     Active Substance: PREGABALIN
     Indication: FIBROMYALGIA
     Dosage: UNK
     Dates: end: 201705
  2. LYRICA [Suspect]
     Active Substance: PREGABALIN
     Dosage: 100 MG, 3X/DAY
     Route: 048
     Dates: start: 20180717

REACTIONS (6)
  - Product use issue [Unknown]
  - Fibromyalgia [Unknown]
  - Condition aggravated [Unknown]
  - Migraine [Unknown]
  - Crying [Unknown]
  - Movement disorder [Unknown]

NARRATIVE: CASE EVENT DATE: 20180717
